FAERS Safety Report 4280039-X (Version None)
Quarter: 2004Q1

REPORT INFORMATION
  Report Type: 
  Country: None (occurrence: None)
  Receive Date: 20040126
  Receipt Date: 20031222
  Transmission Date: 20041129
  Serious: Yes (Other)
  Sender: FDA-Public Use
  Company Number: 2004004030

PATIENT
  Age: 70 Year
  Sex: Female

DRUGS (3)
  1. DIFLUCAN [Suspect]
     Indication: SYSTEMIC MYCOSIS
     Dosage: 200 MG (UNKNOWN), INTRAVENOUS)
     Route: 042
     Dates: start: 20031218, end: 20031222
  2. LIVACT (AMINO ACIDS NOS) [Concomitant]
  3. CEFCAPENE PIVOXIL HYDROCHLORIDE (CEFCAPENE PIVOXIL HYDROCHLORIDE) [Concomitant]

REACTIONS (5)
  - BLOOD PRESSURE DECREASED [None]
  - CONVULSION [None]
  - DEPRESSED LEVEL OF CONSCIOUSNESS [None]
  - DIALYSIS [None]
  - MULTI-ORGAN FAILURE [None]
